FAERS Safety Report 6270383-9 (Version None)
Quarter: 2009Q3

REPORT INFORMATION
  Report Type: 
  Country: None (occurrence: None)
  Receive Date: 20090716
  Receipt Date: 20090714
  Transmission Date: 20100115
  Serious: No
  Sender: FDA-Public Use
  Company Number: US-B.I. PHARMACEUTICALS,INC./RIDGEFIELD-2009-BP-08377BP

PATIENT
  Age: 66 Year
  Sex: Female
  Weight: 86.2 kg

DRUGS (7)
  1. SPIRIVA [Suspect]
  2. NEXIUM [Concomitant]
  3. HYDROCHLOROTHIAZIDE [Concomitant]
  4. CRESTOR [Concomitant]
  5. VITAMINS [Concomitant]
  6. LEVBID [Concomitant]
  7. BROVANA [Concomitant]
     Indication: CHRONIC OBSTRUCTIVE PULMONARY DISEASE
     Dates: start: 20090626

REACTIONS (1)
  - GLAUCOMA [None]
